FAERS Safety Report 23539720 (Version 1)
Quarter: 2024Q1

REPORT INFORMATION
  Report Type: Spontaneous
  Country: US (occurrence: US)
  Receive Date: 20240219
  Receipt Date: 20240219
  Transmission Date: 20240410
  Serious: Yes (Life-Threatening, Hospitalization, Other)
  Sender: FDA-Public Use
  Company Number: US-BRACCO-2023US02925

PATIENT
  Age: 74 Year
  Sex: Female

DRUGS (1)
  1. ISOVUE 370 [Suspect]
     Active Substance: IOPAMIDOL
     Indication: Computerised tomogram neck
     Dosage: UNK UNK, SINGLE
     Dates: start: 20230610, end: 20230610

REACTIONS (1)
  - Anaphylactic reaction [Recovered/Resolved]

NARRATIVE: CASE EVENT DATE: 20230610
